FAERS Safety Report 25157839 (Version 1)
Quarter: 2025Q2

REPORT INFORMATION
  Report Type: Spontaneous
  Country: GB (occurrence: GB)
  Receive Date: 20250403
  Receipt Date: 20250403
  Transmission Date: 20250716
  Serious: Yes (Other)
  Sender: TEVA
  Company Number: GB-MHRA-TPP9685983C3208517YC1742916835903

PATIENT
  Age: 50 Year
  Sex: Female
  Weight: 67 kg

DRUGS (5)
  1. NAPROXEN [Suspect]
     Active Substance: NAPROXEN
     Indication: Ill-defined disorder
     Route: 065
     Dates: start: 20250325
  2. ESTRADIOL [Concomitant]
     Active Substance: ESTRADIOL
     Indication: Ill-defined disorder
     Dosage: (ESTRADIOL) APPLY TWO PATCHES TWICE WEEKLY, TPP YC - PLEASE RECLASSIFY
     Dates: start: 20240312
  3. TESTOSTERONE [Concomitant]
     Active Substance: TESTOSTERONE
     Indication: Ill-defined disorder
     Dosage: APPLY ONE SQUIRT EVERY OTHER DAY, TPP YC - PLEASE RECLASSIFY
     Dates: start: 20250313
  4. NAPROXEN [Concomitant]
     Active Substance: NAPROXEN
     Indication: Ill-defined disorder
     Dosage: AFTER FOOD, TPP YC - PLEASE RECLASSIFY
     Dates: start: 20250318
  5. LANSOPRAZOLE [Concomitant]
     Active Substance: LANSOPRAZOLE
     Indication: Ill-defined disorder
     Dosage: 30 MINUTES BEFORE FOOD WHIL..., TPP YC - PLEASE RECLASSIFY
     Dates: start: 20250318

REACTIONS (2)
  - Eye swelling [Unknown]
  - Oedema [Recovering/Resolving]

NARRATIVE: CASE EVENT DATE: 20250325
